FAERS Safety Report 20651436 (Version 1)
Quarter: 2022Q1

REPORT INFORMATION
  Report Type: Spontaneous
  Country: CN (occurrence: CN)
  Receive Date: 20220330
  Receipt Date: 20220330
  Transmission Date: 20220423
  Serious: Yes (Other)
  Sender: FDA-Public Use
  Company Number: CN-SUN PHARMACEUTICAL INDUSTRIES LTD-2022R1-330750

PATIENT
  Age: 56 Year
  Sex: Male

DRUGS (3)
  1. CARBOPLATIN [Suspect]
     Active Substance: CARBOPLATIN
     Indication: Lung adenocarcinoma stage IV
     Dosage: UNK (AUC 5,PER 3WEEKS, 6 CYCLES)
     Route: 065
     Dates: start: 201911
  2. PEMETREXED [Suspect]
     Active Substance: PEMETREXED
     Indication: Lung adenocarcinoma stage IV
     Dosage: UNK (500MG/M2, EVERY 3WEEKS)
     Route: 065
     Dates: start: 201911
  3. SINTILIMAB [Suspect]
     Active Substance: SINTILIMAB
     Indication: Lung adenocarcinoma stage IV
     Dosage: UNK (200MG PER 3WEEKS)
     Route: 065
     Dates: start: 201911

REACTIONS (2)
  - Therapy partial responder [Unknown]
  - Neutropenia [Unknown]
